FAERS Safety Report 14287989 (Version 1)
Quarter: 2017Q4

REPORT INFORMATION
  Report Type: Spontaneous
  Country: US (occurrence: US)
  Receive Date: 20171214
  Receipt Date: 20171214
  Transmission Date: 20180321
  Serious: No
  Sender: FDA-Public Use
  Company Number: US-PERRIGO-17US000940

PATIENT
  Age: 78 Year
  Sex: Female
  Weight: 47.62 kg

DRUGS (3)
  1. SINGULAIR [Concomitant]
     Active Substance: MONTELUKAST SODIUM
     Indication: SEASONAL ALLERGY
     Dosage: UNK
     Route: 065
     Dates: start: 201609
  2. NASAL PREPARATIONS [Concomitant]
     Active Substance: UNSPECIFIED INGREDIENT
     Indication: SEASONAL ALLERGY
     Dosage: UNK
     Route: 065
     Dates: start: 201609
  3. BACITRACIN. [Suspect]
     Active Substance: BACITRACIN
     Indication: EYELID INFECTION
     Dosage: SMALL AMOUNT, SINGLE
     Route: 047
     Dates: start: 20170120, end: 20170120

REACTIONS (3)
  - Eye pain [Recovering/Resolving]
  - Hypersensitivity [Recovering/Resolving]
  - Ocular hyperaemia [Recovering/Resolving]

NARRATIVE: CASE EVENT DATE: 20170121
